FAERS Safety Report 7320602-2 (Version None)
Quarter: 2011Q1

REPORT INFORMATION
  Report Type: 
  Country: None (occurrence: None)
  Receive Date: 20110228
  Receipt Date: 20110218
  Transmission Date: 20110831
  Serious: Yes (Hospitalization)
  Sender: FDA-Public Use
  Company Number: BR-ASTRAZENECA-2011SE10108

PATIENT
  Age: 73 Year
  Sex: Female
  Weight: 96 kg

DRUGS (7)
  1. ASPIRIN [Concomitant]
     Route: 048
  2. PARACETAMOL [Concomitant]
     Dates: start: 20071219
  3. HYDROCHLOROTHIAZIDE [Concomitant]
     Dates: start: 20000101
  4. NEXIUM [Suspect]
     Indication: GASTROOESOPHAGEAL REFLUX DISEASE
     Route: 048
     Dates: start: 20071020, end: 20110103
  5. CELECOXIB, IBUPROFEN, NAPROXEN, PLACEBO [Suspect]
     Indication: OSTEOARTHRITIS
     Route: 065
     Dates: start: 20071020, end: 20110103
  6. VERAPAMIL [Concomitant]
     Route: 048
     Dates: start: 20000101
  7. CELECOXIB, IBUPROFEN, NAPROXEN, PLACEBO [Suspect]
     Indication: RHEUMATOID ARTHRITIS
     Route: 065
     Dates: start: 20071020, end: 20110103

REACTIONS (1)
  - FEMORAL NECK FRACTURE [None]
